FAERS Safety Report 7687060-X (Version None)
Quarter: 2011Q3

REPORT INFORMATION
  Report Type: 
  Country: None (occurrence: None)
  Receive Date: 20110816
  Receipt Date: 20110810
  Transmission Date: 20111222
  Serious: Yes (Hospitalization, Other)
  Sender: FDA-Public Use
  Company Number: US-SANOFI-AVENTIS-2011SA051562

PATIENT
  Age: 76 Year
  Sex: Male

DRUGS (9)
  1. MULTAQ [Suspect]
     Indication: ATRIAL FIBRILLATION
     Route: 048
     Dates: start: 20090901
  2. PROPRANOLOL [Concomitant]
  3. NORVASC [Concomitant]
  4. ALL OTHER THERAPEUTIC PRODUCTS [Concomitant]
  5. PHENYTOIN [Concomitant]
  6. AVASTIN [Concomitant]
     Route: 031
     Dates: end: 20110101
  7. ASPIRIN [Concomitant]
  8. PREDNISONE [Concomitant]
  9. DEXAMETHASONE [Suspect]
     Route: 031

REACTIONS (5)
  - PYREXIA [None]
  - EYE INFECTION [None]
  - UPPER RESPIRATORY TRACT INFECTION [None]
  - UPPER-AIRWAY COUGH SYNDROME [None]
  - RETINAL DETACHMENT [None]
